FAERS Safety Report 16983076 (Version 1)
Quarter: 2019Q4

REPORT INFORMATION
  Report Type: Spontaneous
  Country: US (occurrence: US)
  Receive Date: 20191030
  Receipt Date: 20191030
  Transmission Date: 20200122
  Serious: Yes (Hospitalization)
  Sender: FDA-Public Use
  Company Number: None

PATIENT
  Age: 53 Week
  Sex: Female

DRUGS (10)
  1. ACYCLOVIR. [Concomitant]
     Active Substance: ACYCLOVIR
  2. LEVOTHYROXINE. [Concomitant]
     Active Substance: LEVOTHYROXINE
  3. HUMIRA [Suspect]
     Active Substance: ADALIMUMAB
     Indication: RHEUMATOID ARTHRITIS
     Dosage: ?          OTHER FREQUENCY:EVERY 7 DAYS;?
     Route: 058
  4. BACLOFEN. [Concomitant]
     Active Substance: BACLOFEN
  5. HYDROCHLOROTHIAZIDE. [Concomitant]
     Active Substance: HYDROCHLOROTHIAZIDE
  6. GABAPENTIN. [Concomitant]
     Active Substance: GABAPENTIN
  7. DILTIAZEM. [Concomitant]
     Active Substance: DILTIAZEM
  8. VITAMIN D [Concomitant]
     Active Substance: VITAMIN D NOS
  9. FOLIC ACID. [Concomitant]
     Active Substance: FOLIC ACID
  10. METHOTREXATE. [Concomitant]
     Active Substance: METHOTREXATE

REACTIONS (1)
  - Thyroid disorder [None]

NARRATIVE: CASE EVENT DATE: 20190923
